FAERS Safety Report 4480237-6 (Version None)
Quarter: 2004Q4

REPORT INFORMATION
  Report Type: 
  Country: None (occurrence: None)
  Receive Date: 20041020
  Receipt Date: 20041011
  Transmission Date: 20050328
  Serious: Yes (Other)
  Sender: FDA-Public Use
  Company Number: US-MERCK-0410USA01754

PATIENT
  Age: 42 Year
  Sex: Female

DRUGS (4)
  1. VIOXX [Suspect]
     Indication: ARTHRITIS
     Route: 048
     Dates: start: 20010901, end: 20041001
  2. VIOXX [Suspect]
     Indication: PAIN MANAGEMENT
     Route: 048
     Dates: start: 20010901, end: 20041001
  3. HORMONES (UNSPECIFIED) [Concomitant]
     Route: 065
  4. [THERAPY UNSPECIFIED] [Concomitant]
     Indication: HYPERTENSION
     Route: 065

REACTIONS (4)
  - ASTHENIA [None]
  - FALL [None]
  - FATIGUE [None]
  - TRANSIENT ISCHAEMIC ATTACK [None]
